FAERS Safety Report 19744773 (Version 1)
Quarter: 2021Q3

REPORT INFORMATION
  Report Type: Spontaneous
  Country: US (occurrence: US)
  Receive Date: 20210825
  Receipt Date: 20210825
  Transmission Date: 20211014
  Serious: Yes (Hospitalization)
  Sender: FDA-Public Use
  Company Number: US-FRESENIUS KABI-FK202108813

PATIENT
  Age: 61 Year
  Sex: Male
  Weight: 110.7 kg

DRUGS (4)
  1. FOLINIC ACID [Suspect]
     Active Substance: LEUCOVORIN
     Indication: PANCREATIC CARCINOMA
     Route: 042
     Dates: start: 20210616, end: 20210630
  2. IRINOTECAN [Suspect]
     Active Substance: IRINOTECAN
     Indication: PANCREATIC CARCINOMA
     Route: 042
     Dates: start: 20210616, end: 20210630
  3. FLUOROURACIL (MANUFACTURER UNKNOWN) [Suspect]
     Active Substance: FLUOROURACIL
     Indication: PANCREATIC CARCINOMA
     Route: 042
     Dates: start: 20210616, end: 20210630
  4. OXALIPLATIN. [Suspect]
     Active Substance: OXALIPLATIN
     Indication: PANCREATIC CARCINOMA
     Route: 042
     Dates: start: 20210616, end: 20210630

REACTIONS (4)
  - Candida infection [Unknown]
  - Enterocolitis infectious [Recovered/Resolved with Sequelae]
  - Pneumonia klebsiella [Unknown]
  - Gastrointestinal haemorrhage [Unknown]

NARRATIVE: CASE EVENT DATE: 20210709
